FAERS Safety Report 14241472 (Version 1)
Quarter: 2017Q4

REPORT INFORMATION
  Report Type: Spontaneous
  Country: US (occurrence: US)
  Receive Date: 20171201
  Receipt Date: 20171201
  Transmission Date: 20180321
  Serious: No
  Sender: FDA-Public Use
  Company Number: US-LUPIN PHARMACEUTICALS INC.-E2B_00007391

PATIENT
  Sex: Female

DRUGS (1)
  1. LOSARTAN POTASSIUM TABLETS, 25 MG [Suspect]
     Active Substance: LOSARTAN POTASSIUM
     Dosage: 25 MG,UNK,UNKNOWN
     Route: 065
     Dates: start: 20170118

REACTIONS (2)
  - Drug ineffective [Unknown]
  - Hypertension [Not Recovered/Not Resolved]
